FAERS Safety Report 9210649 (Version 1)
Quarter: 2013Q2

REPORT INFORMATION
  Report Type: Spontaneous
  Country: US (occurrence: US)
  Receive Date: 20130404
  Receipt Date: 20130404
  Transmission Date: 20140414
  Serious: Yes (Death, Hospitalization)
  Sender: FDA-Public Use
  Company Number: US-GLAXOSMITHKLINE-A0778542A

PATIENT
  Sex: Female
  Weight: 94.5 kg

DRUGS (1)
  1. AVANDIA [Suspect]
     Indication: DIABETES MELLITUS
     Dosage: 8MG PER DAY
     Route: 048
     Dates: start: 2000, end: 2005

REACTIONS (4)
  - Death [Fatal]
  - Cardiac failure congestive [Unknown]
  - Cerebrovascular accident [Unknown]
  - Atrial fibrillation [Unknown]
